FAERS Safety Report 17666100 (Version 1)
Quarter: 2020Q2

REPORT INFORMATION
  Report Type: Spontaneous
  Country: US (occurrence: US)
  Receive Date: 20200413
  Receipt Date: 20200413
  Transmission Date: 20200713
  Serious: No
  Sender: FDA-Public Use
  Company Number: None

PATIENT
  Age: 75 Year
  Sex: Male

DRUGS (2)
  1. MIDAZOLAM HYDROCHLORIDE INJECTION [Suspect]
     Active Substance: MIDAZOLAM HYDROCHLORIDE
     Indication: BRONCHOSCOPY
     Dosage: ?          OTHER STRENGTH:1MG/ML 100ML;?
     Route: 042
     Dates: start: 20191113, end: 20191113
  2. FENTANYL (FENTANYL CITRATE 25MCG/ML INJ,30ML) [Suspect]
     Active Substance: FENTANYL CITRATE
     Indication: BRONCHOSCOPY
     Dosage: ?          OTHER STRENGTH:25MCG/ML, 30ML;?
     Route: 042
     Dates: start: 20191113, end: 20191113

REACTIONS (1)
  - Sedation [None]

NARRATIVE: CASE EVENT DATE: 20191113
